FAERS Safety Report 9139497 (Version 1)
Quarter: 2013Q1

REPORT INFORMATION
  Report Type: Spontaneous
  Country: BR (occurrence: BR)
  Receive Date: 20130305
  Receipt Date: 20130305
  Transmission Date: 20140127
  Serious: Yes (Death)
  Sender: FDA-Public Use
  Company Number: PHHY2013BR021216

PATIENT
  Sex: Male

DRUGS (3)
  1. FORADIL [Suspect]
     Dosage: UNK
     Dates: start: 20060303
  2. FORADIL [Suspect]
     Dosage: UNK
     Dates: start: 20070803
  3. FORASEQ [Suspect]
     Dosage: UNK
     Dates: start: 20120724

REACTIONS (1)
  - Death [Fatal]
